FAERS Safety Report 23087710 (Version 3)
Quarter: 2023Q4

REPORT INFORMATION
  Report Type: Spontaneous
  Country: EG (occurrence: EG)
  Receive Date: 20231020
  Receipt Date: 20231109
  Transmission Date: 20240109
  Serious: Yes (Other)
  Sender: FDA-Public Use
  Company Number: EG-NOVOPROD-1129464

PATIENT
  Sex: Male
  Weight: 86 kg

DRUGS (2)
  1. MIXTARD HUMAN 70/30 [Suspect]
     Active Substance: INSULIN HUMAN
     Indication: Diabetes mellitus
     Dosage: 60 IU, QD (20 UNITS IN THE MORNING, 20 UNITS IN THE AFTERNOON, AND 20 UNITS AT NIGHT)
     Dates: start: 19921226
  2. LANTUS [Concomitant]
     Active Substance: INSULIN GLARGINE
     Indication: Product used for unknown indication
     Dosage: UNK
     Dates: start: 19921226

REACTIONS (1)
  - Diabetic foot [Not Recovered/Not Resolved]
